FAERS Safety Report 9221127 (Version 1)
Quarter: 2013Q2

REPORT INFORMATION
  Report Type: Spontaneous
  Country: GB (occurrence: GB)
  Receive Date: 20130409
  Receipt Date: 20130409
  Transmission Date: 20140414
  Serious: Yes (Hospitalization, Other)
  Sender: FDA-Public Use
  Company Number: GB-AMGEN-GBRSP2013024554

PATIENT
  Age: 50 Year
  Sex: Female
  Weight: 77 kg

DRUGS (1)
  1. ENBREL [Suspect]
     Indication: PRODUCT USED FOR UNKNOWN INDICATION
     Dosage: 50 MG, 2X/WEEK
     Route: 058
     Dates: start: 20110124

REACTIONS (2)
  - Breast cancer [Recovering/Resolving]
  - Off label use [Unknown]
